FAERS Safety Report 7958232-1 (Version None)
Quarter: 2011Q4

REPORT INFORMATION
  Report Type: 
  Country: None (occurrence: None)
  Receive Date: 20111205
  Receipt Date: 20111129
  Transmission Date: 20120403
  Serious: Yes (Death, Other)
  Sender: FDA-Public Use
  Company Number: IR-BAXTER-2011BH037569

PATIENT
  Age: 8 Year
  Sex: Male

DRUGS (4)
  1. ADRIAMYCIN PFS [Suspect]
     Indication: NON-HODGKIN'S LYMPHOMA STAGE III
     Route: 065
  2. VINCRISTINE [Suspect]
     Indication: NON-HODGKIN'S LYMPHOMA STAGE III
     Route: 065
  3. CYCLOPHOSPHAMIDE [Suspect]
     Indication: NON-HODGKIN'S LYMPHOMA STAGE III
     Route: 065
  4. METHOTREXATE [Suspect]
     Indication: NON-HODGKIN'S LYMPHOMA STAGE III
     Route: 037

REACTIONS (2)
  - ENTEROBACTER SEPSIS [None]
  - FEBRILE NEUTROPENIA [None]
